FAERS Safety Report 13119649 (Version 1)
Quarter: 2017Q1

REPORT INFORMATION
  Report Type: Not Available
  Country: GR (occurrence: GR)
  Receive Date: 20170117
  Receipt Date: 20170117
  Transmission Date: 20170428
  Serious: Yes (Other)
  Sender: FDA-Public Use
  Company Number: GR--2016-GR-000004

PATIENT
  Age: 72 Year
  Sex: Male

DRUGS (3)
  1. AMLODIPINE [Suspect]
     Active Substance: AMLODIPINE BESYLATE
     Indication: HYPERTENSION
  2. INSULIN [Concomitant]
     Active Substance: INSULIN NOS
     Indication: TYPE 2 DIABETES MELLITUS
     Route: 058
  3. VALSARTAN. [Concomitant]
     Active Substance: VALSARTAN
     Indication: HYPERTENSION

REACTIONS (11)
  - Klebsiella infection [Unknown]
  - Acute kidney injury [None]
  - Dyspnoea [Recovered/Resolved]
  - Toxicity to various agents [None]
  - Hypotension [Recovered/Resolved]
  - Hypoxia [Recovered/Resolved]
  - Anuria [Recovered/Resolved]
  - Hyperglycaemia [Recovered/Resolved]
  - Muscular weakness [Recovered/Resolved]
  - Anaemia [Unknown]
  - Tremor [Recovered/Resolved]
